FAERS Safety Report 13702806 (Version 2)
Quarter: 2017Q3

REPORT INFORMATION
  Report Type: Spontaneous
  Country: DE (occurrence: DE)
  Receive Date: 20170629
  Receipt Date: 20170731
  Transmission Date: 20171127
  Serious: Yes (Life-Threatening, Hospitalization)
  Sender: FDA-Public Use
  Company Number: DE-JNJFOC-20170620907

PATIENT
  Age: 75 Year
  Sex: Male
  Weight: 81 kg

DRUGS (2)
  1. KIOVIG [Concomitant]
     Active Substance: HUMAN IMMUNOGLOBULIN G
     Route: 042
  2. IMBRUVICA [Suspect]
     Active Substance: IBRUTINIB
     Indication: CHRONIC LYMPHOCYTIC LEUKAEMIA
     Route: 048
     Dates: end: 20170621

REACTIONS (4)
  - Haemorrhage [Not Recovered/Not Resolved]
  - Incorrect dose administered [Unknown]
  - Off label use [Unknown]
  - Ileostomy [Not Recovered/Not Resolved]

NARRATIVE: CASE EVENT DATE: 20170622
